FAERS Safety Report 5736848-0 (Version None)
Quarter: 2008Q2

REPORT INFORMATION
  Report Type: 
  Country: None (occurrence: None)
  Receive Date: 20080508
  Receipt Date: 20080425
  Transmission Date: 20081010
  Serious: Yes (Hospitalization)
  Sender: FDA-Public Use
  Company Number: 190005L08FRA

PATIENT
  Age: 34 Year
  Sex: Female

DRUGS (2)
  1. MENOTROPHIN (MENOTROPHIN) [Suspect]
     Indication: IN VITRO FERTILISATION
     Dates: start: 19990301
  2. CHORIONIC GONADOTROPIN (CHRONIC GONADOTROPHIN) [Suspect]

REACTIONS (9)
  - ABORTION INDUCED [None]
  - CAROTID ARTERY DISSECTION [None]
  - CAROTID ARTERY THROMBOSIS [None]
  - CEREBRAL ISCHAEMIA [None]
  - DRUG EXPOSURE BEFORE PREGNANCY [None]
  - EMBOLISM [None]
  - HEMIPLEGIA [None]
  - NEUROLOGICAL SYMPTOM [None]
  - PREGNANCY [None]
